FAERS Safety Report 4825363-4 (Version None)
Quarter: 2005Q4

REPORT INFORMATION
  Report Type: 
  Country: None (occurrence: None)
  Receive Date: 20051111
  Receipt Date: 20050627
  Transmission Date: 20060501
  Serious: Yes (Other)
  Sender: FDA-Public Use
  Company Number: US-ROCHE-409117

PATIENT
  Age: 41 Year
  Sex: Female
  Weight: 59 kg

DRUGS (2)
  1. DEMADEX [Suspect]
     Dosage: STRENGTH REPORTED AS 20, DOSAGE REGIMEN REPORTED AS 1 PO.
     Route: 048
     Dates: start: 20041108, end: 20050526
  2. QUININE [Suspect]
     Indication: DRUG USE FOR UNKNOWN INDICATION
     Route: 065

REACTIONS (3)
  - DEAFNESS [None]
  - HYPOACUSIS [None]
  - OPTIC NERVE INJURY [None]
